FAERS Safety Report 5430907-8 (Version None)
Quarter: 2007Q3

REPORT INFORMATION
  Report Type: 
  Country: None (occurrence: None)
  Receive Date: 20070828
  Receipt Date: 20070813
  Transmission Date: 20080115
  Serious: Yes (Other)
  Sender: FDA-Public Use
  Company Number: 2007RR-09313

PATIENT
  Age: 51 Year
  Sex: Female

DRUGS (6)
  1. CLARITHROMYCIN [Suspect]
     Dosage: 1 G, ORAL
     Route: 048
  2. ETHAMBUTOL HYDROCHLORIDE [Suspect]
  3. PROMETAZIN (PROMETAZIN) [Concomitant]
  4. SUCRALFATE RPG 1G COMPRIME SECABLE (SUCRALFATE) [Concomitant]
  5. RANITIDINE RPG 150 MG COMPRIME PELLICULE (RANITIDINE) UNKNOWN [Concomitant]
  6. ITRACONAZOLE [Concomitant]

REACTIONS (1)
  - AGRANULOCYTOSIS [None]
